FAERS Safety Report 8272270 (Version 2)
Quarter: 2013Q2

REPORT INFORMATION
  Report Type: Spontaneous
  Country: US (occurrence: None)
  Receive Date: 20111122
  Receipt Date: 20120426
  Transmission Date: 20140414
  Serious: Yes (Other)
  Sender: FDA-Public Use
  Company Number: PHHY2011US58167

PATIENT
  Age: 64 Year
  Sex: Male
  Weight: 68.04 kg

DRUGS (22)
  1. GILENYA [Suspect]
     Indication: RELAPSING-REMITTING MULTIPLE SCLEROSIS
     Dosage: 0.5 MG, QD, ORAL
     Route: 048
     Dates: start: 20110624, end: 20110719
  2. SIMVASTATIN [Concomitant]
  3. NORVASC [Concomitant]
  4. ASPIRIN [Concomitant]
  5. METROGEL (METONIDAZOLE) GEL, 0.75% [Concomitant]
  6. SALINE (SODIUM CHLORIDE)  NASAL [Concomitant]
  7. NITROGLYCERIN (CLYCERYL TRINITRATE) [Concomitant]
  8. VITAMIN D3 (COLECALCIFEROL) CAPSULE [Concomitant]
  9. RITALIN (METHYLPHENIDATE HYDROCHORIDE) TABLET [Concomitant]
  10. IBUPROFEN [Concomitant]
  11. FLEXERIL (CYCLOBENZAPRINE HYDROCHLORIDE) TABLET [Concomitant]
  12. DIPROLENE (BETAMETHASONE DIPROPIONATE) GEL, 0.05% [Concomitant]
  13. FLOMAX [Concomitant]
  14. CYANOCOBALAMIN (CYANOCOBALAMIN) SOLUTION, 1000 UG/ML [Concomitant]
  15. METOPROLOL TARTRATE (METOPROLOL TARTRATE) TABLET, 50 MG [Concomitant]
  16. LAMISIL (TERBINAFINE) TABLET, 250 MG [Concomitant]
  17. ZYRTEC (CETIRIZINE HYDROCHLORIDE) TABLET [Concomitant]
  18. CLODERM (CLOCORTOLONE PIVALATE) [Concomitant]
  19. OMEPRAZOLE [Concomitant]
  20. SILVADENE (SULFADIAZINE SILVER) [Concomitant]
  21. BACTRIM DS (SULFAMETHOXAZOLE, TRIMETHOPRIM) [Concomitant]
  22. DOXYCYCLINE HYCLATE (DOXYCYCLINE HYCLATE) , 100 MG [Concomitant]

REACTIONS (14)
  - HEART RATE DECREASED [None]
  - SOMNOLENCE [None]
  - PAIN IN EXTREMITY [None]
  - HYPERHIDROSIS [None]
  - FATIGUE [None]
  - HYPOAESTHESIA [None]
  - MYALGIA [None]
  - MUSCLE SPASMS [None]
  - DECREASED APPETITE [None]
  - LETHARGY [None]
  - TEMPERATURE INTOLERANCE [None]
  - BACK PAIN [None]
  - HEADACHE [None]
  - DIARRHOEA [None]
